FAERS Safety Report 5611912-5 (Version None)
Quarter: 2008Q1

REPORT INFORMATION
  Report Type: 
  Country: None (occurrence: None)
  Receive Date: 20080131
  Receipt Date: 20080131
  Transmission Date: 20080703
  Serious: Yes (Hospitalization)
  Sender: FDA-Public Use
  Company Number: None

PATIENT
  Age: 59 Year
  Sex: Female
  Weight: 99.7913 kg

DRUGS (1)
  1. LYRICA [Suspect]
     Indication: SCIATICA
     Dosage: 1 DAILY PO
     Route: 048
     Dates: start: 20080124, end: 20080124

REACTIONS (2)
  - DRUG INEFFECTIVE [None]
  - MIGRAINE [None]
